FAERS Safety Report 5821351-X (Version None)
Quarter: 2008Q3

REPORT INFORMATION
  Report Type: 
  Country: None (occurrence: None)
  Receive Date: 20080724
  Receipt Date: 20080714
  Transmission Date: 20090109
  Serious: Yes (Other)
  Sender: FDA-Public Use
  Company Number: GB-MERCK-0807GBR00019

PATIENT
  Age: 90 Year
  Sex: Female

DRUGS (5)
  1. ZOCOR [Suspect]
     Indication: CEREBROVASCULAR ACCIDENT PROPHYLAXIS
     Route: 048
     Dates: start: 20080604, end: 20080607
  2. ASPIRIN [Concomitant]
     Route: 048
  3. ACETAMINOPHEN AND CODEINE PHOSPHATE [Concomitant]
     Route: 048
  4. COZAAR [Concomitant]
     Route: 048
  5. SENNA [Concomitant]
     Route: 048

REACTIONS (3)
  - LIP OEDEMA [None]
  - OEDEMA MOUTH [None]
  - TONGUE OEDEMA [None]
